FAERS Safety Report 18807115 (Version 1)
Quarter: 2021Q1

REPORT INFORMATION
  Report Type: Spontaneous
  Country: US (occurrence: US)
  Receive Date: 20210128
  Receipt Date: 20210128
  Transmission Date: 20210419
  Serious: Yes (Hospitalization)
  Sender: FDA-Public Use
  Company Number: None

PATIENT
  Age: 77 Year
  Sex: Female

DRUGS (9)
  1. LORAZEPAM. [Concomitant]
     Active Substance: LORAZEPAM
  2. TRAVEL SICK [Concomitant]
  3. IMATINIB MES [Suspect]
     Active Substance: IMATINIB MESYLATE
     Indication: MALIGNANT MELANOMA
     Route: 048
     Dates: start: 20180124
  4. CALCITRIOL. [Concomitant]
     Active Substance: CALCITRIOL
  5. LEVOTHYROXIN [Concomitant]
     Active Substance: LEVOTHYROXINE
  6. HYDROCO/APAP [Concomitant]
     Active Substance: ACETAMINOPHEN\HYDROCODONE
  7. VIT. D [Concomitant]
     Active Substance: VITAMIN D NOS
  8. LOPERAMIDE [Concomitant]
     Active Substance: LOPERAMIDE
  9. FLU SHOT [Suspect]
     Active Substance: INFLUENZA VIRUS VACCINE

REACTIONS (1)
  - Adverse reaction [None]
